FAERS Safety Report 20726938 (Version 1)
Quarter: 2022Q2

REPORT INFORMATION
  Report Type: Spontaneous
  Country: IN (occurrence: IN)
  Receive Date: 20220419
  Receipt Date: 20220419
  Transmission Date: 20220721
  Serious: Yes (Hospitalization)
  Sender: FDA-Public Use
  Company Number: IN-ARBOR PHARMACEUTICALS, LLC-IN-2022ARB001038

PATIENT

DRUGS (1)
  1. GABAPENTIN ENACARBIL [Suspect]
     Active Substance: GABAPENTIN ENACARBIL
     Indication: Product used for unknown indication
     Dosage: FOUR EMPTY STRIPS, 10 TABLETS IN EACH STRIP OF GABAPENTIN, AROUND 12000 MILLIGRAM
     Route: 048

REACTIONS (5)
  - Toxicity to various agents [Unknown]
  - Rhabdomyolysis [Recovered/Resolved]
  - Acute kidney injury [Recovered/Resolved]
  - Respiratory depression [Recovering/Resolving]
  - Overdose [Unknown]
